FAERS Safety Report 7387248-1 (Version None)
Quarter: 2011Q1

REPORT INFORMATION
  Report Type: 
  Country: None (occurrence: None)
  Receive Date: 20110331
  Receipt Date: 20110329
  Transmission Date: 20110831
  Serious: Yes (Other)
  Sender: FDA-Public Use
  Company Number: JP-PFIZER INC-2011047147

PATIENT
  Age: 58 Year
  Sex: Male

DRUGS (2)
  1. LYRICA [Suspect]
     Indication: NEUROPATHY PERIPHERAL
     Dosage: 150 MG/DAY
     Route: 048
     Dates: start: 20110203
  2. LYRICA [Suspect]
     Dosage: 75 MG/DAY
     Dates: end: 20110303

REACTIONS (3)
  - HYPOGLYCAEMIA [None]
  - FALL [None]
  - SOMNOLENCE [None]
